FAERS Safety Report 5205807-9 (Version None)
Quarter: 2007Q1

REPORT INFORMATION
  Report Type: 
  Country: None (occurrence: None)
  Receive Date: 20070111
  Receipt Date: 20070104
  Transmission Date: 20070707
  Serious: Yes (Other)
  Sender: FDA-Public Use
  Company Number: CA-JNJFOC-20051204816

PATIENT
  Age: 6 Decade
  Sex: Male

DRUGS (4)
  1. REMICADE [Suspect]
     Indication: CROHN'S DISEASE
     Dosage: INITIATED TREATMENT 3 1/2 YEARS AGO
     Route: 042
  2. CALCIUM [Concomitant]
  3. FOSAMAX [Concomitant]
     Indication: OSTEOPOROSIS
  4. IMURAN [Concomitant]

REACTIONS (3)
  - BENIGN NEOPLASM OF BLADDER [None]
  - HYPERGAMMAGLOBULINAEMIA BENIGN MONOCLONAL [None]
  - NEPHROLITHIASIS [None]
